FAERS Safety Report 19875232 (Version 2)
Quarter: 2021Q4

REPORT INFORMATION
  Report Type: Spontaneous
  Country: DE (occurrence: DE)
  Receive Date: 20210923
  Receipt Date: 20211001
  Transmission Date: 20220303
  Serious: Yes (Hospitalization, Other)
  Sender: FDA-Public Use
  Company Number: DE-BRISTOL-MYERS SQUIBB COMPANY-BMS-2021-095985

PATIENT
  Age: 93 Year
  Sex: Female
  Weight: 45 kg

DRUGS (30)
  1. ELIQUIS [Suspect]
     Active Substance: APIXABAN
     Indication: Cerebrovascular accident prophylaxis
     Dosage: 2.5 MILLIGRAM, BID
     Route: 048
     Dates: start: 20181213, end: 20210607
  2. ELIQUIS [Suspect]
     Active Substance: APIXABAN
     Dosage: 2.5 MILLIGRAM, QD
     Route: 048
     Dates: start: 20210609
  3. CHOLECALCIFEROL [Concomitant]
     Active Substance: CHOLECALCIFEROL
     Indication: Product used for unknown indication
     Dosage: 1000 INTERNATIONAL UNIT, QD
     Route: 065
  4. RAMIPRIL [Concomitant]
     Active Substance: RAMIPRIL
     Indication: Product used for unknown indication
     Dosage: 5 MILLIGRAM, QD
     Route: 065
  5. POTASSIUM [Concomitant]
     Active Substance: POTASSIUM
     Indication: Product used for unknown indication
     Dosage: UNK UNK, TID
     Route: 065
  6. POTASSIUM [Concomitant]
     Active Substance: POTASSIUM
     Dosage: 1 CAPSULE CONTENT (0.8 MILLIMOLE), BID
  7. SALT [Concomitant]
     Active Substance: SODIUM CHLORIDE
     Indication: Product used for unknown indication
     Dosage: 225 MILLIGRAM, TID
     Route: 065
  8. SALT [Concomitant]
     Active Substance: SODIUM CHLORIDE
     Dosage: 0.25 GRAM, BID
     Route: 065
  9. METHIMAZOLE [Concomitant]
     Active Substance: METHIMAZOLE
     Indication: Product used for unknown indication
     Dosage: 20 MILLIGRAM, QD
     Route: 065
  10. NOVODIGAL (.BETA.-ACETYLDIGOXIN) [Concomitant]
     Active Substance: .BETA.-ACETYLDIGOXIN
     Indication: Cardiac disorder
     Dosage: 0.2 MILLIGRAM, QD (SUNDAY AND WEDNESDAY NO TABLET)
     Route: 065
  11. NALOXONE HYDROCHLORIDE\TILIDINE HYDROCHLORIDE [Concomitant]
     Active Substance: NALOXONE HYDROCHLORIDE\TILIDINE HYDROCHLORIDE
     Indication: Product used for unknown indication
     Dosage: 50 MILLIGRAM; 4 MILLIGRAM
     Route: 065
  12. TORSEMIDE [Concomitant]
     Active Substance: TORSEMIDE
     Indication: Product used for unknown indication
     Dosage: 10 MILLIGRAM, QD
     Route: 065
  13. SPERSACARPIN [Concomitant]
     Indication: Product used for unknown indication
     Dosage: 20 MILLIGRAM PER MILLILITER, BID (ON BOTH SIDES)
     Route: 065
  14. PANTOPRAZOLE SODIUM [Concomitant]
     Active Substance: PANTOPRAZOLE SODIUM
     Indication: Product used for unknown indication
     Dosage: 40 MILLIGRAM, BID FOR 3 WEEKS
     Route: 065
  15. FOLIC ACID [Concomitant]
     Active Substance: FOLIC ACID
     Indication: Product used for unknown indication
     Dosage: 5 MILLIGRAM, QD
     Route: 065
  16. METRONIDAZOLE [Concomitant]
     Active Substance: METRONIDAZOLE
     Indication: Product used for unknown indication
     Dosage: 400 MILLIGRAM, BID
     Route: 065
  17. CLARITHROMYCIN [Concomitant]
     Active Substance: CLARITHROMYCIN
     Indication: Product used for unknown indication
     Dosage: 500 MILLIGRAM, BID
     Route: 065
  18. HYDROCHLOROTHIAZIDE [Concomitant]
     Active Substance: HYDROCHLOROTHIAZIDE
     Indication: Product used for unknown indication
     Dosage: 25 MILLIGRAM, QD
     Route: 065
  19. TORSEMIDE [Concomitant]
     Active Substance: TORSEMIDE
     Indication: Product used for unknown indication
     Dosage: 10 MILLIGRAM, 1-1/2-0-0
     Route: 065
  20. METHIMAZOLE [Concomitant]
     Active Substance: METHIMAZOLE
     Indication: Thyroid disorder
     Dosage: 20 MILLIGRAM, 1/2-0-0-0 (EVERY 2ND DAY)
     Route: 065
     Dates: end: 20190918
  21. NALOXONE HYDROCHLORIDE\TILIDINE HYDROCHLORIDE [Concomitant]
     Active Substance: NALOXONE HYDROCHLORIDE\TILIDINE HYDROCHLORIDE
     Indication: Product used for unknown indication
     Dosage: UNK, 0-0-0-30
     Route: 065
  22. PILOCARPINE HYDROCHLORIDE [Concomitant]
     Active Substance: PILOCARPINE HYDROCHLORIDE
     Indication: Intraocular pressure increased
     Dosage: 2 PERCENT, BID (EYE DROPS, BOTH SIDES) (APPROX. 5 PM - 6 PM)
     Route: 065
  23. AMOXICILLIN\CLAVULANIC ACID [Concomitant]
     Active Substance: AMOXICILLIN\CLAVULANIC ACID
     Indication: Product used for unknown indication
     Dosage: 875/125 MILLIGRAM, BID
     Route: 065
     Dates: end: 20190921
  24. RAMIPRIL HYDROCHLOROTHIAZIDE RATIOPHARM [Concomitant]
     Indication: Cardiac discomfort
     Dosage: 5MG/25MG, QD
     Route: 065
  25. TORSEMIDE [Concomitant]
     Active Substance: TORSEMIDE
     Indication: Polyuria
     Dosage: 15 MILLIGRAM (WHEN WEIGHT CA. 50 KG WITHOUT CLOTHES OR LESS THAN CA. 52 KG WITH CLOTHES)
     Route: 065
  26. TORSEMIDE [Concomitant]
     Active Substance: TORSEMIDE
     Dosage: 20 MILLIGRAM (WHEN WEIGHT MORE THAN CA. 50 KG WITHOUT CLOTHES OR MORE THAN 52 KG WITH CLOTHES)
  27. VERAPAMIL HYDROCHLORIDE [Concomitant]
     Active Substance: VERAPAMIL HYDROCHLORIDE
     Indication: Arrhythmia
     Dosage: 240 MILLIGRAM, BID
     Route: 065
  28. VERAPAMIL HYDROCHLORIDE [Concomitant]
     Active Substance: VERAPAMIL HYDROCHLORIDE
     Indication: Cardiac disorder
  29. HAWTHORN [CRATAEGUS LAEVIGATA] [Concomitant]
     Indication: Cardiac disorder
     Dosage: 1 TABLESPOON, BID
     Route: 065
  30. SEDARISTON [HYPERICUM PERFORATUM EXTRACT;MELISSA OFFICINALIS EXTRACT;V [Concomitant]
     Indication: Product used for unknown indication
     Dosage: 20 DROPS (APPROX. 1-3 PM, AGAIN 1 TIME 20 DROPS ONCE AT NIGHT, AGAIN 2 TIMES 20 DROPS WHEN AWAKE)
     Route: 065

REACTIONS (4)
  - Pneumonia [Recovering/Resolving]
  - Pulmonary arterial hypertension [Recovering/Resolving]
  - Hyponatraemia [Recovering/Resolving]
  - Intentional product use issue [Unknown]

NARRATIVE: CASE EVENT DATE: 20190101
